FAERS Safety Report 9704613 (Version 2)
Quarter: 2013Q4

REPORT INFORMATION
  Report Type: Spontaneous
  Country: BR (occurrence: BR)
  Receive Date: 20131122
  Receipt Date: 20131122
  Transmission Date: 20140711
  Serious: Yes (Hospitalization)
  Sender: FDA-Public Use
  Company Number: BR-GALDERMA-BR13003597

PATIENT
  Age: 26 Year
  Sex: Female
  Weight: 39 kg

DRUGS (2)
  1. EPIDUO [Suspect]
     Indication: ACNE
     Route: 061
     Dates: start: 20131021, end: 20131021
  2. PREDNISONE [Concomitant]
     Indication: JUVENILE IDIOPATHIC ARTHRITIS
     Route: 048

REACTIONS (5)
  - Papule [Recovered/Resolved]
  - Pruritus [Recovered/Resolved]
  - Erythema [Recovered/Resolved]
  - Skin burning sensation [Recovered/Resolved]
  - Swelling face [Recovered/Resolved]
